FAERS Safety Report 6060035-2 (Version None)
Quarter: 2009Q1

REPORT INFORMATION
  Report Type: 
  Country: None (occurrence: None)
  Receive Date: 20090128
  Receipt Date: 20090120
  Transmission Date: 20090719
  Serious: Yes (Other)
  Sender: FDA-Public Use
  Company Number: 2009AL000345

PATIENT
  Sex: Female

DRUGS (1)
  1. DIGOXIN [Suspect]
     Indication: HEART RATE IRREGULAR
     Dosage: PO
     Route: 048

REACTIONS (12)
  - CHEST PAIN [None]
  - COLD SWEAT [None]
  - DIZZINESS [None]
  - HEADACHE [None]
  - HEART RATE IRREGULAR [None]
  - METAMORPHOPSIA [None]
  - PAIN IN EXTREMITY [None]
  - PALPITATIONS [None]
  - THERAPEUTIC AGENT TOXICITY [None]
  - URTICARIA [None]
  - VISUAL IMPAIRMENT [None]
  - WEIGHT DECREASED [None]
